FAERS Safety Report 13815441 (Version 1)
Quarter: 2017Q3

REPORT INFORMATION
  Report Type: Spontaneous
  Country: US (occurrence: US)
  Receive Date: 20170731
  Receipt Date: 20170731
  Transmission Date: 20171127
  Serious: Yes (Life-Threatening)
  Sender: FDA-Public Use
  Company Number: None

PATIENT
  Age: 68 Year
  Sex: Female

DRUGS (1)
  1. ALBUMIN [Suspect]
     Active Substance: ALBUMIN HUMAN
     Indication: CARDIAC OPERATION
     Route: 041
     Dates: start: 20170727, end: 20170727

REACTIONS (2)
  - Anaphylactoid reaction [None]
  - Hypotension [None]

NARRATIVE: CASE EVENT DATE: 20170727
